FAERS Safety Report 4779002-1 (Version None)
Quarter: 2005Q3

REPORT INFORMATION
  Report Type: 
  Country: None (occurrence: None)
  Receive Date: 20050923
  Receipt Date: 20050912
  Transmission Date: 20060218
  Serious: Yes (Death, Hospitalization)
  Sender: FDA-Public Use
  Company Number: 2005127274

PATIENT
  Age: 71 Year
  Sex: Male

DRUGS (17)
  1. ATORVASTATIN CALCIUM [Suspect]
     Indication: ILL-DEFINED DISORDER
  2. LEVOTHYROXINE [Concomitant]
  3. PREDNISOLONE [Concomitant]
  4. AZATHIOPRINE [Concomitant]
  5. WARFARIN SODIUM [Concomitant]
  6. ACETYLSALICYLIC ACID SRT [Concomitant]
  7. EZETIMIBE [Concomitant]
  8. FUROSEMIDE [Concomitant]
  9. CARVEDILOL [Concomitant]
  10. AMIODARONE [Concomitant]
  11. SPIRONOLACTONE [Concomitant]
  12. GABAPENTIN [Concomitant]
  13. VALPROATE SODIUM [Concomitant]
  14. AMITRIPTYLINE HCL [Concomitant]
  15. BISOPROLOL [Concomitant]
  16. NICORANDIL [Concomitant]
  17. CODEINE PHOSPHATE [Concomitant]

REACTIONS (11)
  - CARDIAC FAILURE [None]
  - CORONARY ARTERY DISEASE [None]
  - FEEDING DISORDER [None]
  - HAEMOGLOBIN DECREASED [None]
  - HEPATIC FUNCTION ABNORMAL [None]
  - INTERNATIONAL NORMALISED RATIO INCREASED [None]
  - MYOCARDIAL ISCHAEMIA [None]
  - MYOPATHY [None]
  - MYOSITIS [None]
  - NECROSIS [None]
  - RENAL FAILURE CHRONIC [None]
